FAERS Safety Report 19120667 (Version 1)
Quarter: 2021Q2

REPORT INFORMATION
  Report Type: Spontaneous
  Country: US (occurrence: US)
  Receive Date: 20210411
  Receipt Date: 20210411
  Transmission Date: 20210717
  Serious: No
  Sender: FDA-Public Use
  Company Number: None

PATIENT
  Age: 13 Year
  Sex: Female
  Weight: 41.85 kg

DRUGS (4)
  1. LEVOXYL [Concomitant]
     Active Substance: LEVOTHYROXINE SODIUM
  2. LEVOTHYROXINE SODIUM TABLETS, USP [Suspect]
     Active Substance: LEVOTHYROXINE SODIUM
     Indication: AUTOIMMUNE THYROIDITIS
     Dosage: ?          QUANTITY:1 TABLET(S);?
     Route: 048
     Dates: start: 20210217, end: 20210409
  3. CHEWABLE MULTIVITAMINS WITH FLORIDE [Concomitant]
     Active Substance: SODIUM FLUORIDE\VITAMINS
  4. DYANAVEL XR 6ML [Concomitant]

REACTIONS (6)
  - Chromaturia [None]
  - Speech disorder [None]
  - Decreased appetite [None]
  - Abdominal pain upper [None]
  - Lethargy [None]
  - Stupor [None]

NARRATIVE: CASE EVENT DATE: 20210408
